FAERS Safety Report 10978034 (Version 1)
Quarter: 2015Q1

REPORT INFORMATION
  Report Type: Spontaneous
  Country: GB (occurrence: None)
  Receive Date: 20150330
  Receipt Date: 20150330
  Transmission Date: 20150721
  Serious: Yes (Hospitalization)
  Sender: FDA-Public Use
  Company Number: FK201501436

PATIENT
  Age: 34 Year
  Sex: Female
  Weight: 50.8 kg

DRUGS (1)
  1. VANCOMYCIN [Suspect]
     Active Substance: VANCOMYCIN
     Indication: PROPHYLAXIS
     Dosage: 1 GM, UNKNOWN, INTRAVENOUS (NOT OTHERWISE SPECIFIED)
     Route: 042
     Dates: start: 20150311, end: 20150312

REACTIONS (12)
  - Dyskinesia [None]
  - Paraesthesia [None]
  - Muscle twitching [None]
  - Foaming at mouth [None]
  - Confusional state [None]
  - Limb discomfort [None]
  - Agitation [None]
  - Loss of consciousness [None]
  - Generalised tonic-clonic seizure [None]
  - Muscle rigidity [None]
  - Tongue biting [None]
  - Dyspnoea [None]

NARRATIVE: CASE EVENT DATE: 20150311
